FAERS Safety Report 6409753-4 (Version None)
Quarter: 2009Q4

REPORT INFORMATION
  Report Type: 
  Country: None (occurrence: None)
  Receive Date: 20091022
  Receipt Date: 20091014
  Transmission Date: 20100525
  Serious: Yes (Hospitalization, Other)
  Sender: FDA-Public Use
  Company Number: PHHO2008US13929

PATIENT
  Sex: Female
  Weight: 114.3 kg

DRUGS (3)
  1. AMN107 AMN+CAP [Suspect]
     Indication: CHRONIC MYELOID LEUKAEMIA
     Dosage: 400 MG, BID
     Route: 048
     Dates: start: 20040902, end: 20081112
  2. AMN107 AMN+CAP [Suspect]
     Dosage: NO TREATMENT
  3. AMN107 AMN+CAP [Suspect]
     Dosage: 400 MG, BID
     Route: 048

REACTIONS (13)
  - ACUTE CORONARY SYNDROME [None]
  - ANGIOPLASTY [None]
  - ARTERIAL DISORDER [None]
  - ARTERIAL STENOSIS [None]
  - ARTERIAL STENT INSERTION [None]
  - ARTERIOGRAM CORONARY [None]
  - ATHERECTOMY [None]
  - CHEST PAIN [None]
  - CORONARY ARTERY BYPASS [None]
  - HYPERHIDROSIS [None]
  - MYOCARDIAL ISCHAEMIA [None]
  - PERIPHERAL ARTERY ANGIOPLASTY [None]
  - PERIPHERAL ISCHAEMIA [None]
